FAERS Safety Report 24677156 (Version 1)
Quarter: 2024Q4

REPORT INFORMATION
  Report Type: Spontaneous
  Country: US (occurrence: US)
  Receive Date: 20241129
  Receipt Date: 20241129
  Transmission Date: 20250115
  Serious: Yes (Other)
  Sender: KVK-TECH
  Company Number: US-KVK-TECH, INC-20241100170

PATIENT

DRUGS (1)
  1. THIOTEPA [Suspect]
     Active Substance: THIOTEPA
     Indication: Stem cell transplant
     Dosage: UNK, UNKNOWN
     Route: 065

REACTIONS (1)
  - Toxic skin eruption [Unknown]
